FAERS Safety Report 6524994-3 (Version None)
Quarter: 2010Q1

REPORT INFORMATION
  Report Type: 
  Country: None (occurrence: None)
  Receive Date: 20100104
  Receipt Date: 20091222
  Transmission Date: 20100710
  Serious: Yes (Other)
  Sender: FDA-Public Use
  Company Number: PHEH2009US18270

PATIENT

DRUGS (1)
  1. GLEEVEC [Suspect]
     Dosage: UNK, UNK
     Route: 065

REACTIONS (2)
  - PAPILLITIS [None]
  - PAPILLOEDEMA [None]
